FAERS Safety Report 24355061 (Version 1)
Quarter: 2024Q3

REPORT INFORMATION
  Report Type: Spontaneous
  Country: US (occurrence: US)
  Receive Date: 20240923
  Receipt Date: 20240923
  Transmission Date: 20241017
  Serious: No
  Sender: BAUSCH AND LOMB
  Company Number: US-BAUSCHBL-2024BNL033845

PATIENT
  Age: 77 Year
  Sex: Female

DRUGS (3)
  1. DORZOLAMIDE HYDROCHLORIDE\TIMOLOL MALEATE [Suspect]
     Active Substance: DORZOLAMIDE HYDROCHLORIDE\TIMOLOL MALEATE
     Indication: Glaucoma
     Dosage: 1 GTT BID; 1 DROP INTO THE LEFT EYE TWICE DAILY IN THE MORNING AND EVENING.
     Route: 065
     Dates: start: 202408, end: 20240905
  2. SODIUM CHLORIDE HYPERTONICITY [Suspect]
     Active Substance: SODIUM CHLORIDE
     Indication: Corneal oedema
     Route: 065
     Dates: start: 20240828, end: 202408
  3. DORZOLAMIDE [Suspect]
     Active Substance: DORZOLAMIDE
     Indication: Glaucoma
     Dosage: 1 GTT BID; 1 DROP INTO THE LEFT EYE TWICE DAILY IN THE MORNING AND EVENING
     Route: 065
     Dates: end: 202408

REACTIONS (2)
  - Eye pain [Unknown]
  - Foreign body sensation in eyes [Unknown]

NARRATIVE: CASE EVENT DATE: 20240801
